FAERS Safety Report 23510489 (Version 4)
Quarter: 2024Q3

REPORT INFORMATION
  Report Type: Report from Study
  Country: CA (occurrence: CA)
  Receive Date: 20240211
  Receipt Date: 20240821
  Transmission Date: 20241016
  Serious: No
  Sender: ROCHE
  Company Number: CA-ROCHE-3267530

PATIENT
  Sex: Female

DRUGS (2)
  1. OCRELIZUMAB [Suspect]
     Active Substance: OCRELIZUMAB
     Indication: Relapsing-remitting multiple sclerosis
     Dosage: 300 MG AT DAY 0 AND 14, THEN 600 MG EVERY 6 MONTH
     Route: 042
     Dates: start: 20200207
  2. TELMISARTAN [Concomitant]
     Active Substance: TELMISARTAN

REACTIONS (5)
  - Oral herpes [Recovering/Resolving]
  - Hypertension [Unknown]
  - Mite allergy [Recovering/Resolving]
  - Diverticulitis [Recovered/Resolved]
  - COVID-19 [Recovered/Resolved]
